FAERS Safety Report 4318702-4 (Version None)
Quarter: 2004Q1

REPORT INFORMATION
  Report Type: 
  Country: None (occurrence: None)
  Receive Date: 20040315
  Receipt Date: 20040304
  Transmission Date: 20041129
  Serious: Yes (Life-Threatening)
  Sender: FDA-Public Use
  Company Number: 2004PK00449

PATIENT
  Age: 55 Year
  Sex: Male

DRUGS (9)
  1. NEXIUM [Suspect]
     Dosage: 40 MG DAILY PO
     Route: 048
     Dates: start: 20030531, end: 20030708
  2. NORVASC [Suspect]
     Dosage: 5 MG DAILY PO
     Route: 048
     Dates: start: 20030703, end: 20030708
  3. QUILONORM RETARD [Suspect]
     Dosage: 675 MG DAILY PO
     Route: 048
     Dates: start: 20030603, end: 20030612
  4. QUILONORM RETARD [Suspect]
     Dosage: 900 MG DAILY PO
     Route: 048
     Dates: start: 20030613, end: 20030711
  5. QUILONORM RETARD [Suspect]
     Dosage: 450 MG DAILY PO
     Route: 048
     Dates: start: 20030716, end: 20030829
  6. SEROPRAM [Concomitant]
  7. SURMONTIL [Concomitant]
  8. SERESTA [Concomitant]
  9. INSULIN [Concomitant]

REACTIONS (7)
  - CONFUSIONAL STATE [None]
  - DISTURBANCE IN ATTENTION [None]
  - DRUG INTERACTION [None]
  - DRUG TOXICITY [None]
  - HYPONATRAEMIA [None]
  - SOMNOLENCE [None]
  - STUPOR [None]
